FAERS Safety Report 15475614 (Version 1)
Quarter: 2018Q4

REPORT INFORMATION
  Report Type: Spontaneous
  Country: US (occurrence: US)
  Receive Date: 20181008
  Receipt Date: 20181008
  Transmission Date: 20190205
  Serious: Yes (Other)
  Sender: FDA-Public Use
  Company Number: US-ALLERGAN-1844463US

PATIENT
  Age: 60 Year
  Sex: Female

DRUGS (6)
  1. BOTOX COSMETIC [Suspect]
     Active Substance: ONABOTULINUMTOXINA
     Indication: SKIN WRINKLING
     Dosage: 8 UNITS, SINGLE
     Route: 030
     Dates: start: 20180820, end: 20180820
  2. JUVEDERM [Concomitant]
     Active Substance: HYALURONIC ACID
     Indication: EYELID PTOSIS
     Route: 065
  3. BOTOX COSMETIC [Suspect]
     Active Substance: ONABOTULINUMTOXINA
     Indication: SKIN WRINKLING
     Dosage: 24 UNITS IN GLABELLA AND 4 UNITS IN RIGHT BROW, SINGLE
     Route: 030
     Dates: start: 20180731, end: 20180731
  4. BOTOX COSMETIC [Suspect]
     Active Substance: ONABOTULINUMTOXINA
     Indication: FACIAL ASYMMETRY
     Dosage: UNK, SINGLE
     Route: 030
  5. WRINKLE REDUCERS (UNSPECIFIED) [Suspect]
     Active Substance: UNSPECIFIED INGREDIENT
     Indication: SKIN WRINKLING
     Dosage: UNK
     Route: 061
  6. BOTOX COSMETIC [Suspect]
     Active Substance: ONABOTULINUMTOXINA
     Indication: EYELID PTOSIS

REACTIONS (8)
  - Eyelid ptosis [Unknown]
  - Meniscus injury [Not Recovered/Not Resolved]
  - Product administered at inappropriate site [Unknown]
  - Off label use [Unknown]
  - Pain [Not Recovered/Not Resolved]
  - Drug ineffective [Unknown]
  - Discomfort [Unknown]
  - Burns second degree [Unknown]

NARRATIVE: CASE EVENT DATE: 201805
